FAERS Safety Report 24274490 (Version 2)
Quarter: 2025Q1

REPORT INFORMATION
  Report Type: Spontaneous
  Country: JP (occurrence: JP)
  Receive Date: 20240902
  Receipt Date: 20250328
  Transmission Date: 20250409
  Serious: Yes (Other)
  Sender: PFIZER
  Company Number: JP-PFIZER INC-PV202400112521

PATIENT
  Sex: Male

DRUGS (1)
  1. ESTRAMUSTINE [Suspect]
     Active Substance: ESTRAMUSTINE
     Indication: Prostate cancer
     Route: 048

REACTIONS (1)
  - Hepatitis viral [Unknown]

NARRATIVE: CASE EVENT DATE: 20240820
